FAERS Safety Report 15264823 (Version 9)
Quarter: 2022Q2

REPORT INFORMATION
  Report Type: Spontaneous
  Country: US (occurrence: US)
  Receive Date: 20180810
  Receipt Date: 20220427
  Transmission Date: 20220721
  Serious: Yes (Hospitalization, Other)
  Sender: FDA-Public Use
  Company Number: None

PATIENT
  Age: 9 Year
  Sex: Female
  Weight: 26.4 kg

DRUGS (40)
  1. KYMRIAH [Suspect]
     Active Substance: TISAGENLECLEUCEL
     Indication: Acute lymphocytic leukaemia
     Dosage: 1.4X10E4 CAR T/KG, ONCE/SINGLE
     Route: 042
     Dates: start: 20180425, end: 201808
  2. PIPERACILLIN AND TAZOBACTAM [Concomitant]
     Active Substance: PIPERACILLIN SODIUM\TAZOBACTAM SODIUM
     Indication: Bacterial infection
     Dosage: UNK UNK, Q8H
     Route: 042
     Dates: start: 20180420, end: 20180518
  3. ACYCLOVIR [Concomitant]
     Active Substance: ACYCLOVIR
     Indication: Viral infection
     Dosage: UNK UNK, Q8H
     Route: 042
     Dates: start: 20180418, end: 20180419
  4. ALLOPURINOL [Concomitant]
     Active Substance: ALLOPURINOL
     Indication: Blood uric acid increased
     Dosage: UNK UNK, TID
     Route: 048
     Dates: start: 20180419, end: 20180424
  5. ALLOPURINOL [Concomitant]
     Active Substance: ALLOPURINOL
     Dosage: UNK, TID
     Route: 048
     Dates: start: 20180515, end: 20180522
  6. CARMEX [Concomitant]
     Active Substance: CAMPHOR\MENTHOL\PHENOL\POTASSIUM ALUM\SALICYLIC ACID
     Indication: Lip dry
     Dosage: UNK UNK, PRN
     Route: 061
     Dates: start: 20180421, end: 20180518
  7. CEFEPIME [Concomitant]
     Active Substance: CEFEPIME HYDROCHLORIDE
     Indication: Bacterial infection
     Dosage: UNK UNK, Q8H
     Route: 042
     Dates: start: 20180327, end: 20180518
  8. CEFEPIME [Concomitant]
     Active Substance: CEFEPIME HYDROCHLORIDE
     Dosage: UNK
     Route: 042
     Dates: start: 20180517, end: 20180528
  9. CYCLOPHOSPHAMIDE [Concomitant]
     Active Substance: CYCLOPHOSPHAMIDE
     Indication: Chemotherapy
     Dosage: UNK UNK, QD
     Route: 042
     Dates: start: 20180419, end: 20180422
  10. DOCUSATE [Concomitant]
     Active Substance: DOCUSATE
     Indication: Product used for unknown indication
     Dosage: UNK UNK, BID
     Route: 048
     Dates: start: 20180327, end: 20180424
  11. FLUDARABINE [Concomitant]
     Active Substance: FLUDARABINE PHOSPHATE
     Indication: Chemotherapy
     Dosage: UNK UNK, QD
     Route: 042
     Dates: start: 20180419, end: 20180422
  12. ISRADIPINE [Concomitant]
     Active Substance: ISRADIPINE
     Indication: Hypertension
     Dosage: UNK UNK, Q6H, PRN
     Route: 048
     Dates: start: 20180425, end: 20180518
  13. ISRADIPINE [Concomitant]
     Active Substance: ISRADIPINE
     Dosage: UNK
     Route: 048
     Dates: start: 20180524, end: 20180531
  14. MELATONIN [Concomitant]
     Active Substance: MELATONIN
     Indication: Sleep disorder
     Dosage: UNK UNK, QD
     Route: 048
     Dates: start: 20180327, end: 20180517
  15. MERCAPTOPURINE [Concomitant]
     Active Substance: MERCAPTOPURINE
     Indication: Chemotherapy
     Dosage: UNK
     Route: 048
     Dates: start: 20180327, end: 20180329
  16. MICAFUNGIN [Concomitant]
     Active Substance: MICAFUNGIN
     Indication: Fungal infection
     Dosage: UNK UNK, QD
     Route: 042
  17. MORPHINE [Concomitant]
     Active Substance: MORPHINE
     Indication: Pain
     Dosage: UNK UNK, Q6H, PRN
     Route: 042
     Dates: start: 20180420, end: 20180518
  18. MORPHINE [Concomitant]
     Active Substance: MORPHINE
     Dosage: UNK, Q4H,PRN
     Route: 042
     Dates: start: 20180515, end: 20180522
  19. ONDANSETRON [Concomitant]
     Active Substance: ONDANSETRON
     Indication: Prophylaxis of nausea and vomiting
     Dosage: UNK UNK, Q8H
     Route: 042
     Dates: start: 20180419, end: 20180423
  20. ONDANSETRON [Concomitant]
     Active Substance: ONDANSETRON
     Dosage: UNK
     Route: 042
     Dates: start: 20180514, end: 20180531
  21. OXYCODONE [Concomitant]
     Active Substance: OXYCODONE
     Indication: Pain
     Dosage: UNK UNK, Q6H, PRN
     Route: 048
     Dates: start: 20180327, end: 20180518
  22. OXYMETAZOLINE [Concomitant]
     Active Substance: OXYMETAZOLINE
     Indication: Nasal congestion
     Dosage: UNK
     Route: 045
     Dates: start: 20180408, end: 20180417
  23. PHYTONADIONE [Concomitant]
     Active Substance: PHYTONADIONE
     Indication: Vitamin K deficiency
     Dosage: UNK UNK, QD
     Route: 048
     Dates: start: 20180430, end: 20180507
  24. PHYTONADIONE [Concomitant]
     Active Substance: PHYTONADIONE
     Dosage: UNK, QD
     Route: 048
     Dates: start: 20180514, end: 20180517
  25. SARGRAMOSTIM [Concomitant]
     Active Substance: SARGRAMOSTIM
     Indication: Bacterial infection
     Dosage: UNK UNK, QD
     Route: 058
     Dates: start: 20180406, end: 20180409
  26. SENNA [Concomitant]
     Active Substance: SENNA LEAF\SENNOSIDES\SENNOSIDES A AND B
     Indication: Constipation
     Dosage: UNK UNK, QD
     Route: 048
     Dates: start: 20180327, end: 20180424
  27. TROPICAMIDE [Concomitant]
     Active Substance: TROPICAMIDE
     Indication: Product used for unknown indication
     Dosage: UNK UNK,
     Route: 047
  28. VANCOMYCIN [Concomitant]
     Active Substance: VANCOMYCIN
     Indication: Bacterial infection
     Dosage: UNK UNK, Q8H
     Route: 042
     Dates: start: 20180410, end: 20180504
  29. VANCOMYCIN [Concomitant]
     Active Substance: VANCOMYCIN
     Dosage: UNK, TID
     Route: 048
     Dates: start: 20180527, end: 20180531
  30. VANCOMYCIN [Concomitant]
     Active Substance: VANCOMYCIN
     Dosage: UNK, Q6H
     Route: 042
     Dates: start: 20180518, end: 20180524
  31. VORICONAZOLE [Concomitant]
     Active Substance: VORICONAZOLE
     Indication: Fungal infection
     Dosage: UNK
     Route: 065
     Dates: start: 20180405, end: 20180422
  32. GABAPENTIN [Concomitant]
     Active Substance: GABAPENTIN
     Indication: Neuralgia
     Dosage: UNK UNK, QD
     Route: 048
     Dates: start: 20180514, end: 20180514
  33. HYDROMORPHONE [Concomitant]
     Active Substance: HYDROMORPHONE
     Indication: Pain
     Dosage: UNK UNK, Q3H,PRN
     Route: 042
     Dates: start: 20180522, end: 20180531
  34. KEPPRA [Concomitant]
     Active Substance: LEVETIRACETAM
     Indication: Seizure
     Dosage: UNK UNK, BID
     Route: 042
     Dates: start: 20180520, end: 20180527
  35. LEVOFLOXACIN [Concomitant]
     Active Substance: LEVOFLOXACIN
     Indication: Bacterial infection
     Dosage: UNK UNK, QD
     Route: 048
     Dates: start: 20180530, end: 20180531
  36. LORAZEPAM [Concomitant]
     Active Substance: LORAZEPAM
     Indication: Product used for unknown indication
     Dosage: UNK UNK, ONCE/SINGLE
     Route: 042
     Dates: start: 20180520, end: 20180520
  37. RANITIDINE [Concomitant]
     Active Substance: RANITIDINE
     Indication: Product used for unknown indication
     Dosage: UNK UNK, ONCE/SINGLE
     Route: 042
     Dates: start: 20180515, end: 20180531
  38. SIMETHICONE (DIMETHICONE) [Concomitant]
     Active Substance: DIMETHICONE
     Indication: Flatulence
     Dosage: UNK UNK, Q6H,PRN
     Route: 048
     Dates: start: 20180519, end: 20180522
  39. TOCILIZUMAB [Concomitant]
     Active Substance: TOCILIZUMAB
     Indication: Product used for unknown indication
     Dosage: UNK UNK, ONCE/SINGLE
     Route: 042
     Dates: start: 20180520, end: 20180521
  40. PHENYLEPHRINE [Concomitant]
     Active Substance: PHENYLEPHRINE HYDROCHLORIDE
     Indication: Eye disorder
     Dosage: UNK
     Route: 047
     Dates: start: 20180521, end: 20180521

REACTIONS (5)
  - Acute lymphocytic leukaemia recurrent [Not Recovered/Not Resolved]
  - Neutropenia [Unknown]
  - Pyrexia [Unknown]
  - Pyrexia [Recovered/Resolved]
  - B-cell aplasia [Not Recovered/Not Resolved]

NARRATIVE: CASE EVENT DATE: 20180502
